FAERS Safety Report 5639357-2 (Version None)
Quarter: 2008Q1

REPORT INFORMATION
  Report Type: 
  Country: None (occurrence: None)
  Receive Date: 20080131
  Receipt Date: 20071221
  Transmission Date: 20080703
  Serious: Yes (Hospitalization)
  Sender: FDA-Public Use
  Company Number: 163-21880-07111086

PATIENT
  Age: 58 Year
  Sex: Male

DRUGS (3)
  1. REVLIMID [Suspect]
     Indication: CHRONIC LYMPHOCYTIC LEUKAEMIA
     Dosage: 10 MG, 1 IN 1 D, ORAL
     Route: 048
     Dates: start: 20070516, end: 20071115
  2. MAGNESIUM OXIDE (MAGNESIUM OXIDE) [Concomitant]
  3. NEPHROCAPS (NEPHROCAPS) [Concomitant]

REACTIONS (2)
  - NEUTROPENIA [None]
  - RESPIRATORY FAILURE [None]
